FAERS Safety Report 23454703 (Version 4)
Quarter: 2025Q3

REPORT INFORMATION
  Report Type: Spontaneous
  Country: US (occurrence: US)
  Receive Date: 20240130
  Receipt Date: 20250729
  Transmission Date: 20251021
  Serious: Yes (Disabling, Other)
  Sender: AMGEN
  Company Number: US-HORIZON THERAPEUTICS-HZN-2024-000982

PATIENT
  Age: 53 Year
  Sex: Female

DRUGS (22)
  1. TEPEZZA [Suspect]
     Active Substance: TEPROTUMUMAB-TRBW
     Indication: Endocrine ophthalmopathy
     Route: 042
     Dates: start: 20230330
  2. TEPEZZA [Suspect]
     Active Substance: TEPROTUMUMAB-TRBW
     Route: 042
     Dates: start: 20230824
  3. PEPCID [Concomitant]
     Active Substance: FAMOTIDINE
     Dosage: 10 MILLIGRAM, BID
     Route: 048
     Dates: start: 20211101
  4. NEURONTIN [Concomitant]
     Active Substance: GABAPENTIN
     Dosage: 300 MILLIGRAM, QD
     Route: 048
     Dates: start: 20230428
  5. ZESTRIL [Concomitant]
     Active Substance: LISINOPRIL
     Dosage: 20 MILLIGRAM, QD
     Route: 048
     Dates: start: 20230428
  6. TAPAZOLE [Concomitant]
     Active Substance: METHIMAZOLE
     Dosage: UNK, QD
     Route: 048
     Dates: start: 20230112
  7. TAPAZOLE [Concomitant]
     Active Substance: METHIMAZOLE
     Dosage: 10 MILLIGRAM, QD (ONE HAD HALF TABLET)
     Route: 048
     Dates: start: 20230602, end: 20240220
  8. TOPROL XL [Concomitant]
     Active Substance: METOPROLOL SUCCINATE
     Route: 048
     Dates: start: 20240328
  9. PROTONIX [Concomitant]
     Active Substance: PANTOPRAZOLE SODIUM
     Dosage: 20 MILLIGRAM, QD
     Route: 048
     Dates: start: 20230428
  10. ZOLOFT [Concomitant]
     Active Substance: SERTRALINE HYDROCHLORIDE
     Dosage: 50 MG, QD
     Route: 048
  11. XARELTO [Concomitant]
     Active Substance: RIVAROXABAN
     Indication: Pulmonary embolism
     Dosage: 20 MILLIGRAM, QD
     Route: 048
     Dates: start: 20210915
  12. LOPRESSOR [Concomitant]
     Active Substance: METOPROLOL TARTRATE
     Dosage: 25 MILLIGRAM, QD
     Route: 048
  13. Lacri-lube [Concomitant]
     Dosage: UNK, QD EVERY EVENING
     Dates: start: 20220801
  14. EFFEXOR [Concomitant]
     Active Substance: VENLAFAXINE HYDROCHLORIDE
     Dosage: 75 MILLIGRAM, QD
     Route: 048
  15. FLUOCINONIDE [Concomitant]
     Active Substance: FLUOCINONIDE
  16. HYDROCORTISONE [Concomitant]
     Active Substance: HYDROCORTISONE
  17. METHIMAZOLE [Concomitant]
     Active Substance: METHIMAZOLE
     Dates: start: 20230112
  18. TOPROL XL [Concomitant]
     Active Substance: METOPROLOL SUCCINATE
     Route: 048
     Dates: start: 20210419
  19. PROPYLTHIOURACIL [Concomitant]
     Active Substance: PROPYLTHIOURACIL
     Dosage: 50 MILLIGRAM, TID
     Route: 048
  20. ALBUTEROL SULFATE [Concomitant]
     Active Substance: ALBUTEROL SULFATE
     Indication: Wheezing
     Dosage: UNK UNK, Q6H
     Dates: start: 20230817
  21. SPIRIVA RESPIMAT [Concomitant]
     Active Substance: TIOTROPIUM BROMIDE
     Dates: start: 20230913, end: 20240829
  22. REFRESH TEARS [Concomitant]
     Active Substance: CARBOXYMETHYLCELLULOSE SODIUM
     Dosage: UNK UNK, QID (1-2 DROPS)
     Route: 047
     Dates: start: 20230918

REACTIONS (19)
  - Mixed deafness [Not Recovered/Not Resolved]
  - Disability [Not Recovered/Not Resolved]
  - Physical disability [Not Recovered/Not Resolved]
  - Pain [Not Recovered/Not Resolved]
  - Emotional distress [Not Recovered/Not Resolved]
  - Economic problem [Not Recovered/Not Resolved]
  - Impaired quality of life [Not Recovered/Not Resolved]
  - Anxiety [Not Recovered/Not Resolved]
  - Injury [Not Recovered/Not Resolved]
  - Concomitant disease aggravated [Not Recovered/Not Resolved]
  - Discomfort [Unknown]
  - Product quality issue [Unknown]
  - Diplopia [Not Recovered/Not Resolved]
  - Lacrimation increased [Not Recovered/Not Resolved]
  - Infusion site bruising [Unknown]
  - Tinnitus [Not Recovered/Not Resolved]
  - Anti-thyroid antibody positive [Unknown]
  - Anti-thyroid antibody increased [Unknown]
  - Blood thyroid stimulating hormone increased [Unknown]

NARRATIVE: CASE EVENT DATE: 20230101
